FAERS Safety Report 13014590 (Version 1)
Quarter: 2016Q4

REPORT INFORMATION
  Report Type: Spontaneous
  Country: US (occurrence: US)
  Receive Date: 20161209
  Receipt Date: 20161209
  Transmission Date: 20170207
  Serious: Yes (Hospitalization)
  Sender: FDA-Public Use
  Company Number: US-CELGENEUS-USA-2016122375

PATIENT
  Sex: Male
  Weight: 81.72 kg

DRUGS (2)
  1. THALOMID [Suspect]
     Active Substance: THALIDOMIDE
     Indication: BEHCET^S SYNDROME
     Dosage: 50MG
     Route: 048
     Dates: start: 200702
  2. THALOMID [Suspect]
     Active Substance: THALIDOMIDE
     Dosage: 50MG
     Route: 048

REACTIONS (1)
  - Malaise [Unknown]
